FAERS Safety Report 5129113-6 (Version None)
Quarter: 2006Q4

REPORT INFORMATION
  Report Type: 
  Country: None (occurrence: None)
  Receive Date: 20061011
  Receipt Date: 20060918
  Transmission Date: 20070319
  Serious: Yes (Hospitalization, Other)
  Sender: FDA-Public Use
  Company Number: DE200608006737

PATIENT
  Sex: Female
  Weight: 90 kg

DRUGS (7)
  1. GEMCITABINE [Suspect]
     Indication: BREAST CANCER
     Dosage: 1890 MG, INTRAVENOUS; SEE IMAGE
     Route: 042
     Dates: start: 20060727, end: 20060727
  2. GEMCITABINE [Suspect]
     Indication: BREAST CANCER
     Dosage: 1890 MG, INTRAVENOUS; SEE IMAGE
     Route: 042
     Dates: start: 20060602
  3. GEMCITABINE [Suspect]
     Indication: BREAST CANCER
     Dosage: 1890 MG, INTRAVENOUS; SEE IMAGE
     Route: 042
     Dates: start: 20060720
  4. *DOCETAXEL (*DOCETAXEL) UNKNOWN [Suspect]
     Indication: BREAST CANCER
     Dosage: 142 MG, INTRAVENOUS
     Route: 042
     Dates: start: 20060720, end: 20060720
  5. *DOCETAXEL (*DOCETAXEL) UNKNOWN [Suspect]
     Indication: BREAST CANCER
     Dosage: 142 MG, INTRAVENOUS
     Route: 042
     Dates: start: 20060602
  6. DEXAHEXAL (DEXAMETHASONE PHOSPHATE) [Concomitant]
  7. KEVATRIL (GRANISETRON HYDROCHLORIDE) [Concomitant]

REACTIONS (5)
  - ALANINE AMINOTRANSFERASE INCREASED [None]
  - ASPARTATE AMINOTRANSFERASE INCREASED [None]
  - PERIODONTITIS [None]
  - SINUSITIS [None]
  - TOOTH LOSS [None]
